FAERS Safety Report 8466789-X (Version None)
Quarter: 2012Q2

REPORT INFORMATION
  Report Type: 
  Country: None (occurrence: None)
  Receive Date: 20120619
  Receipt Date: 20120615
  Transmission Date: 20120825
  Serious: Yes (Other)
  Sender: FDA-Public Use
  Company Number: ADR-2011-11601

PATIENT
  Sex: Male

DRUGS (4)
  1. DILAUDID INTARTHECAL [Concomitant]
  2. MORPHINE INTRATHECAL [Concomitant]
  3. BACLOFEN [Suspect]
     Indication: PAIN
  4. BACLOFEN [Suspect]
     Indication: BACK PAIN

REACTIONS (11)
  - DRUG EFFECT DECREASED [None]
  - BEDRIDDEN [None]
  - HAEMATOCHEZIA [None]
  - GENERAL PHYSICAL HEALTH DETERIORATION [None]
  - FALL [None]
  - DRUG DOSE OMISSION [None]
  - MALAISE [None]
  - PAIN [None]
  - WEIGHT DECREASED [None]
  - DRUG WITHDRAWAL SYNDROME [None]
  - BACK PAIN [None]
